FAERS Safety Report 9369477 (Version 7)
Quarter: 2013Q4

REPORT INFORMATION
  Report Type: Spontaneous
  Country: US (occurrence: US)
  Receive Date: 20130626
  Receipt Date: 20131122
  Transmission Date: 20140711
  Serious: Yes (Other)
  Sender: FDA-Public Use
  Company Number: US-PFIZER INC-2013188465

PATIENT
  Age: 60 Year
  Sex: Male

DRUGS (3)
  1. SUTENT [Suspect]
     Indication: RENAL CANCER
     Dosage: 50 MG, UNK (STRENGTH 12.5 MG)
     Route: 048
     Dates: start: 20121129, end: 20130103
  2. SUTENT [Suspect]
     Dosage: 37.5 MG, CYCLIC 4 WEEKS ON/2 WEEKS OFF
     Route: 048
     Dates: start: 20130105
  3. SUTENT [Suspect]
     Dosage: 37.5 MG, CYCLIC DAILY 4 WEEKS ON/ 2 WEEKS OFF
     Route: 048
     Dates: start: 20121129, end: 20131115

REACTIONS (8)
  - Face oedema [Not Recovered/Not Resolved]
  - Drug intolerance [Unknown]
  - Blister [Recovered/Resolved]
  - Oral herpes [Not Recovered/Not Resolved]
  - Fatigue [Unknown]
  - Diarrhoea [Unknown]
  - Back pain [Unknown]
  - Nausea [Unknown]
